FAERS Safety Report 18953486 (Version 1)
Quarter: 2021Q1

REPORT INFORMATION
  Report Type: Spontaneous
  Country: US (occurrence: US)
  Receive Date: 20210301
  Receipt Date: 20210301
  Transmission Date: 20210420
  Serious: No
  Sender: FDA-Public Use
  Company Number: None

PATIENT
  Age: 52 Year
  Sex: Female

DRUGS (2)
  1. VENTOLIN HFA [Suspect]
     Active Substance: ALBUTEROL SULFATE
     Indication: IMMUNODEFICIENCY
     Route: 048
     Dates: start: 20201110
  2. SYMBICORT [Suspect]
     Active Substance: BUDESONIDE\FORMOTEROL FUMARATE DIHYDRATE
     Indication: IMMUNODEFICIENCY
     Dosage: ?          OTHER DOSE:160/4.5;?
     Route: 048
     Dates: start: 20201110

REACTIONS (2)
  - Ear pain [None]
  - Oropharyngeal pain [None]

NARRATIVE: CASE EVENT DATE: 20201230
